FAERS Safety Report 19786465 (Version 1)
Quarter: 2021Q3

REPORT INFORMATION
  Report Type: Spontaneous
  Country: US (occurrence: US)
  Receive Date: 20210903
  Receipt Date: 20210903
  Transmission Date: 20211014
  Serious: Yes (Other)
  Sender: FDA-Public Use
  Company Number: US-GLAXOSMITHKLINE-US2021GSK185868

PATIENT
  Sex: Male

DRUGS (8)
  1. RANITIDINE. [Suspect]
     Active Substance: RANITIDINE
     Indication: IRRITABLE BOWEL SYNDROME
     Dosage: 75 MG, QD
     Route: 065
     Dates: start: 200901, end: 201112
  2. RANITIDINE. [Suspect]
     Active Substance: RANITIDINE
     Indication: INFLAMMATORY BOWEL DISEASE
  3. RANITIDINE. [Suspect]
     Active Substance: RANITIDINE
     Indication: INFLAMMATORY BOWEL DISEASE
  4. RANITIDINE. [Suspect]
     Active Substance: RANITIDINE
     Indication: IRRITABLE BOWEL SYNDROME
     Dosage: 75 MG, QD
     Route: 065
     Dates: start: 200901, end: 201112
  5. ZANTAC [Suspect]
     Active Substance: RANITIDINE HYDROCHLORIDE
     Indication: IRRITABLE BOWEL SYNDROME
     Dosage: 75 MG, QD
     Route: 065
     Dates: start: 200901, end: 201112
  6. ZANTAC [Suspect]
     Active Substance: RANITIDINE HYDROCHLORIDE
     Indication: INFLAMMATORY BOWEL DISEASE
  7. ZANTAC [Suspect]
     Active Substance: RANITIDINE HYDROCHLORIDE
     Indication: IRRITABLE BOWEL SYNDROME
     Dosage: 75 MG, QD
     Route: 065
     Dates: start: 200901, end: 201112
  8. ZANTAC [Suspect]
     Active Substance: RANITIDINE HYDROCHLORIDE
     Indication: INFLAMMATORY BOWEL DISEASE

REACTIONS (1)
  - Prostate cancer [Unknown]
